FAERS Safety Report 18222012 (Version 1)
Quarter: 2020Q3

REPORT INFORMATION
  Report Type: Spontaneous
  Country: US (occurrence: US)
  Receive Date: 20200902
  Receipt Date: 20200902
  Transmission Date: 20201103
  Serious: Yes (Hospitalization)
  Sender: FDA-Public Use
  Company Number: US-EMCURE PHARMACEUTICALS LTD-2020-EPL-001202

PATIENT
  Age: 86 Year
  Sex: Female

DRUGS (6)
  1. VANCOMYCIN HYDROCHLORIDE. [Suspect]
     Active Substance: VANCOMYCIN HYDROCHLORIDE
     Indication: OSTEOMYELITIS
     Dosage: 1250 MILLIGRAM, BID
     Route: 042
  2. PIPERACILLIN AND TAZOBACTAM [Interacting]
     Active Substance: PIPERACILLIN SODIUM\TAZOBACTAM SODIUM
     Indication: OSTEOMYELITIS
     Dosage: 2.25 MILLIGRAM, QID
  3. IBUPROFEN. [Concomitant]
     Active Substance: IBUPROFEN
     Indication: PAIN
     Dosage: 400 MILLIGRAM, PRN
  4. METHOTREXATE. [Interacting]
     Active Substance: METHOTREXATE
     Indication: RHEUMATOID ARTHRITIS
     Dosage: 12.5 MILLIGRAM
     Route: 048
  5. FOLIC ACID. [Concomitant]
     Active Substance: FOLIC ACID
     Dosage: UNK
  6. PREDNISONE. [Concomitant]
     Active Substance: PREDNISONE
     Indication: RHEUMATOID ARTHRITIS
     Dosage: 20 MILLIGRAM, DAILY
     Route: 048

REACTIONS (11)
  - Toxicity to various agents [Recovering/Resolving]
  - Odynophagia [Recovered/Resolved]
  - Thrombocytopenia [Recovered/Resolved]
  - Haematemesis [Recovered/Resolved]
  - Stomatitis [Recovered/Resolved]
  - Leukopenia [Recovered/Resolved]
  - Febrile neutropenia [Recovered/Resolved]
  - Antibiotic level above therapeutic [Recovered/Resolved]
  - Drug interaction [Unknown]
  - Gingival bleeding [Recovered/Resolved]
  - Acute kidney injury [Recovering/Resolving]
